FAERS Safety Report 15207389 (Version 1)
Quarter: 2018Q3

REPORT INFORMATION
  Report Type: Spontaneous
  Country: DE (occurrence: DE)
  Receive Date: 20180727
  Receipt Date: 20180727
  Transmission Date: 20181010
  Serious: Yes (Hospitalization, Other)
  Sender: FDA-Public Use
  Company Number: DE-PFIZER INC-2018296917

PATIENT
  Age: 21 Year
  Sex: Female

DRUGS (2)
  1. LORAZEPAM. [Suspect]
     Active Substance: LORAZEPAM
     Dosage: 2 MG, 1X/DAY
     Route: 048
     Dates: start: 20180404
  2. HALOPERIDOL. [Suspect]
     Active Substance: HALOPERIDOL
     Dosage: 7.5 MG, 1X/DAY
     Route: 048
     Dates: start: 20180404, end: 20180406

REACTIONS (1)
  - Dyskinesia [Recovered/Resolved]

NARRATIVE: CASE EVENT DATE: 20180405
